FAERS Safety Report 22182273 (Version 1)
Quarter: 2023Q2

REPORT INFORMATION
  Report Type: Spontaneous
  Country: US (occurrence: US)
  Receive Date: 20230406
  Receipt Date: 20230406
  Transmission Date: 20230722
  Serious: Yes (Other)
  Sender: FDA-Public Use
  Company Number: US-ELI_LILLY_AND_COMPANY-US202304002193

PATIENT
  Age: 49 Year
  Sex: Female

DRUGS (2)
  1. CIALIS [Suspect]
     Active Substance: TADALAFIL
     Indication: Pulmonary hypertension
     Dosage: UNK UNK, UNKNOWN
     Route: 065
     Dates: start: 202204
  2. LETAIRIS [Suspect]
     Active Substance: AMBRISENTAN
     Indication: Pulmonary hypertension
     Dosage: UNK, UNKNOWN
     Route: 065
     Dates: start: 202204

REACTIONS (1)
  - Myelodysplastic syndrome [Unknown]
